FAERS Safety Report 10577704 (Version 2)
Quarter: 2014Q4

REPORT INFORMATION
  Report Type: Report from Study
  Country: US (occurrence: US)
  Receive Date: 20141111
  Receipt Date: 20141111
  Transmission Date: 20150529
  Serious: Yes (Hospitalization, Other)
  Sender: FDA-Public Use
  Company Number: US-ABBVIE-14K-163-1302954-00

PATIENT
  Sex: Female
  Weight: 2.8 kg

DRUGS (1)
  1. HUMIRA [Suspect]
     Active Substance: ADALIMUMAB
     Indication: CROHN^S DISEASE
     Route: 065
     Dates: start: 2010

REACTIONS (6)
  - Hypophagia [Unknown]
  - Asthenia [Recovered/Resolved]
  - Radiation skin injury [Recovering/Resolving]
  - Neuroendocrine carcinoma of the skin [Recovering/Resolving]
  - Crohn^s disease [Recovered/Resolved]
  - Weight decreased [Unknown]

NARRATIVE: CASE EVENT DATE: 2013
